FAERS Safety Report 25755913 (Version 2)
Quarter: 2025Q3

REPORT INFORMATION
  Report Type: Spontaneous
  Country: US (occurrence: US)
  Receive Date: 20250903
  Receipt Date: 20250922
  Transmission Date: 20251021
  Serious: Yes (Other)
  Sender: TEVA
  Company Number: US-TEVA-VS-3366877

PATIENT
  Age: 40 Year
  Sex: Female

DRUGS (8)
  1. HYDROXYCHLOROQUINE [Suspect]
     Active Substance: HYDROXYCHLOROQUINE
     Indication: Dermatomyositis
     Route: 065
  2. RITUXIMAB [Suspect]
     Active Substance: RITUXIMAB
     Indication: Dermatomyositis
     Route: 065
  3. MYCOPHENOLATE MOFETIL [Concomitant]
     Active Substance: MYCOPHENOLATE MOFETIL
     Indication: Dermatomyositis
     Dosage: SYSTEMIC THERAPY
     Route: 065
  4. METHOTREXATE [Suspect]
     Active Substance: METHOTREXATE
     Indication: Dermatomyositis
     Route: 065
  5. Immunoglobulins [Concomitant]
     Indication: Dermatomyositis
     Route: 042
  6. AZATHIOPRINE [Suspect]
     Active Substance: AZATHIOPRINE
     Indication: Dermatomyositis
     Dosage: SYSTEMIC THERAPY
     Route: 065
  7. PREDNISONE [Suspect]
     Active Substance: PREDNISONE
     Indication: Dermatomyositis
     Dosage: SYSTEMIC THERAPY
     Route: 065
  8. APREMILAST [Suspect]
     Active Substance: APREMILAST
     Indication: Dermatomyositis
     Dosage: SYSTEMIC THERAPY
     Route: 065

REACTIONS (3)
  - Treatment failure [Unknown]
  - Steroid diabetes [Unknown]
  - Metabolic dysfunction-associated steatohepatitis [Unknown]
